FAERS Safety Report 7538530-6 (Version None)
Quarter: 2011Q2

REPORT INFORMATION
  Report Type: 
  Country: None (occurrence: None)
  Receive Date: 20110610
  Receipt Date: 20110601
  Transmission Date: 20111010
  Serious: Yes (Hospitalization)
  Sender: FDA-Public Use
  Company Number: US-BIOGENIDEC-2011BI020225

PATIENT
  Age: 57 Year
  Sex: Female

DRUGS (1)
  1. TYSABRI [Suspect]
     Indication: MULTIPLE SCLEROSIS
     Route: 042
     Dates: start: 20100331

REACTIONS (5)
  - PROCEDURAL PAIN [None]
  - ORTHOPNOEA [None]
  - BENIGN NEOPLASM OF THYROID GLAND [None]
  - GOITRE [None]
  - BLOOD CALCIUM DECREASED [None]
